FAERS Safety Report 19509727 (Version 1)
Quarter: 2021Q3

REPORT INFORMATION
  Report Type: Other
  Country: CA (occurrence: CA)
  Receive Date: 20210709
  Receipt Date: 20210709
  Transmission Date: 20211014
  Serious: Yes (Other)
  Sender: FDA-Public Use
  Company Number: CA-APOTEX-2021AP015701

PATIENT
  Age: 17 Year
  Sex: Male
  Weight: 52 kg

DRUGS (2)
  1. APO?LEVETIRACETAM [Suspect]
     Active Substance: LEVETIRACETAM
     Indication: EPILEPSY
     Dosage: 500 MILLIGRAM, BID
     Route: 065
  2. EPIVAL [VALPROATE SODIUM] [Concomitant]
     Active Substance: VALPROATE SODIUM
     Indication: PRODUCT USED FOR UNKNOWN INDICATION
     Dosage: UNK
     Route: 065

REACTIONS (3)
  - Frustration tolerance decreased [Unknown]
  - Aggression [Unknown]
  - Suicidal ideation [Unknown]
